FAERS Safety Report 9639448 (Version 1)
Quarter: 2013Q4

REPORT INFORMATION
  Report Type: Spontaneous
  Country: CA (occurrence: CA)
  Receive Date: 20131022
  Receipt Date: 20131022
  Transmission Date: 20140711
  Serious: Yes (Other)
  Sender: FDA-Public Use
  Company Number: CA-ROCHE-1291711

PATIENT
  Age: 64 Year
  Sex: Male

DRUGS (5)
  1. XOLAIR [Suspect]
     Indication: ASTHMA
     Route: 058
     Dates: start: 20110104
  2. XOLAIR [Suspect]
     Route: 058
     Dates: start: 20130320
  3. XOLAIR [Suspect]
     Route: 058
     Dates: start: 20131015
  4. SINGULAIR [Concomitant]
  5. ADVAIR [Concomitant]

REACTIONS (3)
  - Blood pressure increased [Unknown]
  - Musculoskeletal pain [Unknown]
  - Rales [Unknown]
